FAERS Safety Report 14980504 (Version 6)
Quarter: 2019Q3

REPORT INFORMATION
  Report Type: Spontaneous
  Country: US (occurrence: US)
  Receive Date: 20180606
  Receipt Date: 20190717
  Transmission Date: 20191004
  Serious: Yes (Hospitalization, Other)
  Sender: FDA-Public Use
  Company Number: US-PFIZER INC-2018228717

PATIENT
  Age: 85 Year
  Sex: Female
  Weight: 63 kg

DRUGS (2)
  1. XELJANZ XR [Suspect]
     Active Substance: TOFACITINIB CITRATE
     Indication: RHEUMATOID ARTHRITIS
     Dosage: 11 MG, 1X/DAY (IN THE MORNING)
     Route: 048
     Dates: start: 201801
  2. VICODIN [Concomitant]
     Active Substance: ACETAMINOPHEN\HYDROCODONE BITARTRATE
     Indication: PAIN
     Dosage: UNK, 1X/DAY AT NIGHT

REACTIONS (9)
  - Condition aggravated [Unknown]
  - Melanocytic naevus [Recovered/Resolved]
  - Fatigue [Not Recovered/Not Resolved]
  - Poor quality sleep [Unknown]
  - Musculoskeletal stiffness [Not Recovered/Not Resolved]
  - Impaired healing [Unknown]
  - Pain in extremity [Not Recovered/Not Resolved]
  - Skin cancer [Unknown]
  - Pruritus [Unknown]

NARRATIVE: CASE EVENT DATE: 20180517
